FAERS Safety Report 8159939-6 (Version None)
Quarter: 2012Q1

REPORT INFORMATION
  Report Type: 
  Country: None (occurrence: None)
  Receive Date: 20120223
  Receipt Date: 20120215
  Transmission Date: 20120608
  Serious: Yes (Hospitalization)
  Sender: FDA-Public Use
  Company Number: CZ-GLAXOSMITHKLINE-B0783159A

PATIENT
  Sex: Female
  Weight: 79 kg

DRUGS (2)
  1. OFATUMUMAB [Suspect]
     Indication: CHRONIC LYMPHOCYTIC LEUKAEMIA
     Route: 042
     Dates: start: 20120125
  2. DEXAMETHASONE [Suspect]
     Indication: CHRONIC LYMPHOCYTIC LEUKAEMIA
     Dosage: 40MG CYCLIC
     Route: 048
     Dates: start: 20120125

REACTIONS (1)
  - DIABETES MELLITUS [None]
